FAERS Safety Report 13837150 (Version 1)
Quarter: 2017Q3

REPORT INFORMATION
  Report Type: Spontaneous
  Country: US (occurrence: US)
  Receive Date: 20170804
  Receipt Date: 20170804
  Transmission Date: 20171127
  Serious: No
  Sender: FDA-Public Use
  Company Number: US-ROCHE-675398

PATIENT
  Sex: Female
  Weight: 59 kg

DRUGS (4)
  1. VITAMIN NOS [Concomitant]
     Dosage: DRUG REPORTED AS VITAMIN
     Route: 065
  2. CALCIUM [Concomitant]
     Active Substance: CALCIUM
     Route: 065
  3. BONIVA [Suspect]
     Active Substance: IBANDRONATE SODIUM
     Indication: OSTEOPENIA
     Dosage: TAKEN FOR APPROX. 2 YEARS
     Route: 048
     Dates: start: 20051017, end: 20071114
  4. BONIVA [Suspect]
     Active Substance: IBANDRONATE SODIUM
     Route: 048

REACTIONS (3)
  - Medication error [Unknown]
  - Osteopenia [Unknown]
  - Bone density decreased [Unknown]
